FAERS Safety Report 4879161-6 (Version None)
Quarter: 2006Q1

REPORT INFORMATION
  Report Type: 
  Country: None (occurrence: None)
  Receive Date: 20060112
  Receipt Date: 20051216
  Transmission Date: 20060701
  Serious: Yes (Other)
  Sender: FDA-Public Use
  Company Number: LB-ROCHE-430013

PATIENT
  Age: 30 Year
  Sex: Female

DRUGS (2)
  1. ROACCUTANE [Suspect]
     Indication: DRUG USE FOR UNKNOWN INDICATION
     Route: 048
     Dates: start: 20050115, end: 20050715
  2. ROACCUTANE [Suspect]
     Route: 048
     Dates: start: 20040215, end: 20040715

REACTIONS (2)
  - DYSMENORRHOEA [None]
  - MENORRHAGIA [None]
